FAERS Safety Report 9441533 (Version 2)
Quarter: 2013Q3

REPORT INFORMATION
  Report Type: Spontaneous
  Country: JP (occurrence: JP)
  Receive Date: 20130805
  Receipt Date: 20130817
  Transmission Date: 20140515
  Serious: Yes (Other)
  Sender: FDA-Public Use
  Company Number: JP-UCBSA-093924

PATIENT
  Age: 35 Year
  Sex: Female

DRUGS (9)
  1. E KEPPRA [Suspect]
     Indication: TEMPORAL LOBE EPILEPSY
     Route: 048
     Dates: start: 20130423, end: 201306
  2. E KEPPRA [Suspect]
     Indication: TEMPORAL LOBE EPILEPSY
     Route: 048
     Dates: start: 201306, end: 201306
  3. E KEPPRA [Suspect]
     Indication: TEMPORAL LOBE EPILEPSY
     Route: 048
     Dates: start: 201306
  4. TEGRETOL [Concomitant]
     Dosage: 900 MG DAILY
     Route: 048
  5. ALEVIATIN [Concomitant]
  6. PRIMIDONE [Concomitant]
     Route: 048
  7. GABAPEN [Concomitant]
     Route: 048
  8. GABAPEN [Concomitant]
     Dosage: REDUCED DOSE
     Route: 048
     Dates: start: 201306, end: 201306
  9. GABAPEN [Concomitant]
     Route: 048
     Dates: start: 201306

REACTIONS (1)
  - White blood cell count decreased [Not Recovered/Not Resolved]
